FAERS Safety Report 10637126 (Version 1)
Quarter: 2014Q4

REPORT INFORMATION
  Report Type: Spontaneous
  Country: AT (occurrence: AT)
  Receive Date: 20141208
  Receipt Date: 20141208
  Transmission Date: 20150529
  Serious: Yes (Other)
  Sender: FDA-Public Use
  Company Number: AT-JNJFOC-20141117959

PATIENT
  Sex: Male
  Weight: 89 kg

DRUGS (3)
  1. BEZAFIBRAT [Concomitant]
     Route: 048
     Dates: start: 201203
  2. ALLOPURINOL. [Concomitant]
     Active Substance: ALLOPURINOL
     Route: 048
     Dates: start: 201203
  3. STELARA [Suspect]
     Active Substance: USTEKINUMAB
     Indication: PSORIASIS
     Route: 058
     Dates: start: 20100929

REACTIONS (1)
  - Basal cell carcinoma [Recovering/Resolving]
